FAERS Safety Report 16456827 (Version 3)
Quarter: 2019Q3

REPORT INFORMATION
  Report Type: Report from Study
  Country: DE (occurrence: DE)
  Receive Date: 20190620
  Receipt Date: 20190723
  Transmission Date: 20191004
  Serious: Yes (Hospitalization)
  Sender: FDA-Public Use
  Company Number: DE-ROCHE-2333867

PATIENT
  Age: 76 Year
  Sex: Female
  Weight: 64.2 kg

DRUGS (9)
  1. FOLINSAEURE [Suspect]
     Active Substance: LEUCOVORIN
     Indication: COLORECTAL CANCER METASTATIC
     Dosage: ON 07/SEP/2015, SHE RECEIVED HER MOST RECENT DOSE OF FOLINSAEURE.?19 DAY 15
     Route: 042
     Dates: start: 20140701
  2. 5-FU [FLUOROURACIL] [Suspect]
     Active Substance: FLUOROURACIL
     Indication: COLORECTAL CANCER METASTATIC
     Dosage: ON 07/SEP/2015, SHE RECEIVED HER MOST RECENT DOSE OF FLUROURACIL.?1 EVERY DAY 15
     Route: 042
     Dates: start: 20140701
  3. BISOPROLOL [Concomitant]
     Active Substance: BISOPROLOL
     Route: 065
     Dates: start: 2003
  4. SIMVASTATIN. [Concomitant]
     Active Substance: SIMVASTATIN
     Route: 065
     Dates: start: 2008
  5. BEVACIZUMAB. [Suspect]
     Active Substance: BEVACIZUMAB
     Indication: COLORECTAL CANCER METASTATIC
     Dosage: ON 07/SEP/2015, SHE RECEIVED HER MOST RECENT DOSE OF BEVACIZUMAB.?DAY 1, Q DAY 21
     Route: 042
     Dates: start: 20140701
  6. IRINOTECAN [Suspect]
     Active Substance: IRINOTECAN
     Indication: COLORECTAL CANCER METASTATIC
     Dosage: ON 19/JAN/2015, SHE RECEIVED HER MOST RECENT DOSE OF IRINOTECAN.?DAY 1 , Q DAY 21 (AS PER PROTOCOL).
     Route: 042
     Dates: start: 20140701
  7. DELIX [RAMIPRIL] [Concomitant]
     Active Substance: RAMIPRIL
     Route: 065
  8. PANTOZOL [Concomitant]
     Active Substance: PANTOPRAZOLE SODIUM
     Route: 065
  9. 5-FU [FLUOROURACIL] [Suspect]
     Active Substance: FLUOROURACIL
     Route: 042
     Dates: start: 20140701

REACTIONS (2)
  - Dehydration [Recovered/Resolved with Sequelae]
  - Chronic kidney disease [Recovered/Resolved with Sequelae]

NARRATIVE: CASE EVENT DATE: 20150907
